FAERS Safety Report 22279328 (Version 1)
Quarter: 2023Q2

REPORT INFORMATION
  Report Type: Spontaneous
  Country: US (occurrence: None)
  Receive Date: 20230502
  Receipt Date: 20230502
  Transmission Date: 20230721
  Serious: Yes (Hospitalization)
  Sender: FDA-Public Use
  Company Number: None

PATIENT
  Age: 70 Year
  Sex: Male

DRUGS (4)
  1. TACROLIMUS [Suspect]
     Active Substance: TACROLIMUS
     Indication: Heart transplant
     Dosage: FREQUENCY : TWICE A DAY;?
     Route: 048
     Dates: start: 20180913
  2. TACROLIMUS [Suspect]
     Active Substance: TACROLIMUS
     Indication: Gastrointestinal inflammation
  3. PREDNISONE [Concomitant]
     Active Substance: PREDNISONE
  4. PRAVASTATIN [Concomitant]
     Active Substance: PRAVASTATIN

REACTIONS (9)
  - Heart transplant [None]
  - Fall [None]
  - Joint injury [None]
  - Memory impairment [None]
  - Pneumonia [None]
  - Sepsis [None]
  - Asthenia [None]
  - Loss of personal independence in daily activities [None]
  - Dementia [None]

NARRATIVE: CASE EVENT DATE: 20230412
